FAERS Safety Report 4927909-4 (Version None)
Quarter: 2006Q1

REPORT INFORMATION
  Report Type: 
  Country: None (occurrence: None)
  Receive Date: 20060228
  Receipt Date: 20060216
  Transmission Date: 20060701
  Serious: Yes (Hospitalization)
  Sender: FDA-Public Use
  Company Number: FR-GILEAD-2006-0009238

PATIENT
  Age: 36 Year
  Sex: Male
  Weight: 75 kg

DRUGS (5)
  1. VIREAD [Suspect]
     Indication: HIV INFECTION
     Route: 048
     Dates: start: 20030915, end: 20051202
  2. VIDEX [Suspect]
     Indication: HIV INFECTION
     Route: 048
     Dates: start: 20030915, end: 20051202
  3. OMEPRAZOLE [Concomitant]
     Route: 048
     Dates: start: 20050425
  4. METHADONE HCL [Concomitant]
     Route: 048
     Dates: start: 19971015
  5. EPIVIR [Concomitant]
     Indication: HIV INFECTION
     Route: 048
     Dates: start: 20030915, end: 20051202

REACTIONS (11)
  - ASCITES [None]
  - BUNDLE BRANCH BLOCK RIGHT [None]
  - CHOLELITHIASIS [None]
  - DRUG INTERACTION [None]
  - DRUG INTERACTION POTENTIATION [None]
  - ERYTHROSIS [None]
  - ESCHERICHIA INFECTION [None]
  - HEPATIC CIRRHOSIS [None]
  - HEPATOSPLENOMEGALY [None]
  - JAUNDICE [None]
  - PANCREATITIS ACUTE [None]
